FAERS Safety Report 8953993 (Version 1)
Quarter: 2012Q4

REPORT INFORMATION
  Report Type: 
  Country: US (occurrence: US)
  Receive Date: 20121206
  Receipt Date: 20121206
  Transmission Date: 20130627
  Serious: No
  Sender: FDA-Public Use
  Company Number: US-009507513-1212USA001055

PATIENT
  Age: 70 Year
  Sex: Male

DRUGS (2)
  1. CLARITIN [Suspect]
     Indication: URTICARIA
     Dosage: UNK, Unknown
     Route: 048
  2. CLARITIN [Suspect]
     Indication: LIP SWELLING

REACTIONS (2)
  - Drug effect decreased [Unknown]
  - Off label use [Unknown]
